FAERS Safety Report 17253600 (Version 3)
Quarter: 2020Q1

REPORT INFORMATION
  Report Type: Spontaneous
  Country: FR (occurrence: FR)
  Receive Date: 20200109
  Receipt Date: 20200227
  Transmission Date: 20200409
  Serious: Yes (Death)
  Sender: FDA-Public Use
  Company Number: FR-MYLANLABS-2020M1003691

PATIENT
  Age: 91 Year
  Sex: Male
  Weight: 63 kg

DRUGS (2)
  1. SERESTA [Suspect]
     Active Substance: OXAZEPAM
     Indication: ANXIETY
     Dosage: SI BESOIN MAX 10MG
     Route: 048
     Dates: end: 20190805
  2. MIRTAZAPINE. [Suspect]
     Active Substance: MIRTAZAPINE
     Indication: DEPRESSION
     Dosage: 30 MILLIGRAM, QD
     Route: 048
     Dates: end: 20190805

REACTIONS (2)
  - Altered state of consciousness [Fatal]
  - Respiratory distress [Fatal]

NARRATIVE: CASE EVENT DATE: 20190805
